FAERS Safety Report 14578734 (Version 1)
Quarter: 2018Q1

REPORT INFORMATION
  Report Type: Spontaneous
  Country: IT (occurrence: IT)
  Receive Date: 20180227
  Receipt Date: 20180227
  Transmission Date: 20180509
  Serious: Yes (Hospitalization)
  Sender: FDA-Public Use
  Company Number: IT-SA-2017SA111729

PATIENT
  Age: 16 Year
  Sex: Male

DRUGS (3)
  1. HUMALOG [Suspect]
     Active Substance: INSULIN LISPRO
     Route: 058
  2. LANTUS [Suspect]
     Active Substance: INSULIN GLARGINE
     Route: 058
  3. NOVOMIX [Suspect]
     Active Substance: INSULIN ASPART
     Dosage: FORM: INJECTABLE SUSPENSION DOSE:20 UNIT(S)
     Route: 058

REACTIONS (4)
  - Trismus [Unknown]
  - Loss of consciousness [Unknown]
  - Hypoglycaemia [Unknown]
  - Clonic convulsion [Unknown]

NARRATIVE: CASE EVENT DATE: 20170527
